FAERS Safety Report 26009602 (Version 1)
Quarter: 2025Q4

REPORT INFORMATION
  Report Type: Spontaneous
  Country: US (occurrence: US)
  Receive Date: 20251107
  Receipt Date: 20251107
  Transmission Date: 20260117
  Serious: No
  Sender: JOHNSON AND JOHNSON
  Company Number: US-JNJFOC-20251013592

PATIENT
  Sex: Male

DRUGS (2)
  1. TALVEY [Suspect]
     Active Substance: TALQUETAMAB-TGVS
     Indication: Plasma cell myeloma
     Route: 058
  2. TALVEY [Suspect]
     Active Substance: TALQUETAMAB-TGVS
     Route: 058

REACTIONS (2)
  - Injection site rash [Unknown]
  - Skin exfoliation [Unknown]
